FAERS Safety Report 25473306 (Version 1)
Quarter: 2025Q2

REPORT INFORMATION
  Report Type: Spontaneous
  Country: HR (occurrence: HR)
  Receive Date: 20250624
  Receipt Date: 20250624
  Transmission Date: 20250716
  Serious: Yes (Other)
  Sender: FRESENIUS KABI
  Company Number: None

PATIENT
  Age: 64 Year
  Sex: Male
  Weight: 110 kg

DRUGS (2)
  1. OXALIPLATIN [Suspect]
     Active Substance: OXALIPLATIN
     Indication: Rectal cancer
     Route: 042
     Dates: start: 20250524, end: 20250524
  2. Duostin [Concomitant]
     Indication: Product used for unknown indication
     Dosage: 1 DF = 0.5 MG DUTASTERIDE + 0.4 MG TAMSULOSIN HYDROCHLORIDE?FOA: CAPSULE, HARD
     Route: 048

REACTIONS (5)
  - Hypertension [Recovered/Resolved]
  - Hiccups [Recovered/Resolved]
  - Pruritus [Recovered/Resolved]
  - Erythema [Recovered/Resolved]
  - Dyspnoea [Recovered/Resolved]

NARRATIVE: CASE EVENT DATE: 20250524
